FAERS Safety Report 13395570 (Version 1)
Quarter: 2017Q2

REPORT INFORMATION
  Report Type: Spontaneous
  Country: US (occurrence: US)
  Receive Date: 20170402
  Receipt Date: 20170402
  Transmission Date: 20170830
  Serious: Yes (Life-Threatening, Hospitalization)
  Sender: FDA-Public Use
  Company Number: None

PATIENT
  Age: 37 Year
  Weight: 103.5 kg

DRUGS (1)
  1. EPIPEN [Suspect]
     Active Substance: EPINEPHRINE
     Indication: HYPERSENSITIVITY
     Route: 030
     Dates: start: 20170329

REACTIONS (3)
  - Swelling face [None]
  - Malaise [None]
  - Product quality issue [None]

NARRATIVE: CASE EVENT DATE: 20170329
